FAERS Safety Report 16647469 (Version 1)
Quarter: 2019Q3

REPORT INFORMATION
  Report Type: Spontaneous
  Country: US (occurrence: US)
  Receive Date: 20190617
  Receipt Date: 20190617
  Transmission Date: 20191004
  Serious: No
  Sender: FDA-Public Use
  Company Number: None

PATIENT

DRUGS (2)
  1. LEVALBUTEROL HCL [Suspect]
     Active Substance: LEVALBUTEROL HYDROCHLORIDE
     Dosage: ?          OTHER DOSE:1.25 MG/3 ML;OTHER ROUTE:NEBULIZER SOLUTION?
  2. LEVALBUTEROL HCL [Suspect]
     Active Substance: LEVALBUTEROL HYDROCHLORIDE

REACTIONS (3)
  - Product dispensing error [None]
  - Incorrect product dosage form administered [None]
  - Product preparation error [None]
